FAERS Safety Report 19785452 (Version 3)
Quarter: 2021Q4

REPORT INFORMATION
  Report Type: Report from Study
  Country: US (occurrence: None)
  Receive Date: 20210903
  Receipt Date: 20211112
  Transmission Date: 20220303
  Serious: Yes (Hospitalization)
  Sender: FDA-Public Use
  Company Number: US-ROCHE-2898337

PATIENT
  Age: 76 Year
  Sex: Male
  Weight: 117.6 kg

DRUGS (13)
  1. TUCATINIB [Suspect]
     Active Substance: TUCATINIB
     Indication: Non-small cell lung cancer
     Route: 048
     Dates: start: 20210611, end: 20210817
  2. TRASTUZUMAB [Suspect]
     Active Substance: TRASTUZUMAB
     Indication: Non-small cell lung cancer
     Route: 042
     Dates: start: 20210611, end: 20210813
  3. TRASTUZUMAB [Suspect]
     Active Substance: TRASTUZUMAB
     Route: 042
     Dates: start: 20210813
  4. ASPIRIN [Concomitant]
     Active Substance: ASPIRIN
  5. ATORVASTATIN CALCIUM [Concomitant]
     Active Substance: ATORVASTATIN CALCIUM
  6. VITAMIN D3 [Concomitant]
     Active Substance: CHOLECALCIFEROL
  7. VITAMIN B12 [Concomitant]
     Active Substance: CYANOCOBALAMIN
  8. FOLIC ACID [Concomitant]
     Active Substance: FOLIC ACID
  9. GUAIFENESIN [Concomitant]
     Active Substance: GUAIFENESIN
  10. LISINOPRIL [Concomitant]
     Active Substance: LISINOPRIL
  11. MEGARED OMEGA 3 [Concomitant]
  12. POTASSIUM CHLORIDE [Concomitant]
     Active Substance: POTASSIUM CHLORIDE
  13. METFORMIN [Concomitant]
     Active Substance: METFORMIN HYDROCHLORIDE

REACTIONS (1)
  - Syncope [Recovered/Resolved]

NARRATIVE: CASE EVENT DATE: 20210817
